FAERS Safety Report 4685795-4 (Version None)
Quarter: 2005Q2

REPORT INFORMATION
  Report Type: 
  Country: None (occurrence: None)
  Receive Date: 20050607
  Receipt Date: 20050607
  Transmission Date: 20051028
  Serious: Yes (Other)
  Sender: FDA-Public Use
  Company Number: None

PATIENT
  Sex: Female

DRUGS (1)
  1. ESTRADIOL PATCH [Suspect]
     Dosage: 1 PATCH Q WK
     Route: 062

REACTIONS (8)
  - DRUG EFFECT DECREASED [None]
  - DRUG INTOLERANCE [None]
  - ERYTHEMA [None]
  - PAIN [None]
  - PHARMACEUTICAL PRODUCT COMPLAINT [None]
  - PRURITUS [None]
  - RASH [None]
  - SKIN IRRITATION [None]
